FAERS Safety Report 9850521 (Version 1)
Quarter: 2013Q4

REPORT INFORMATION
  Report Type: Spontaneous
  Country: US (occurrence: None)
  Receive Date: 20131127
  Receipt Date: 20131127
  Transmission Date: 20140711
  Serious: No
  Sender: FDA-Public Use
  Company Number: 223649LEO

PATIENT
  Age: 70 Year
  Sex: Male

DRUGS (1)
  1. PICATO [Suspect]
     Indication: ACTINIC KERATOSIS
     Dates: start: 20130822, end: 20130824

REACTIONS (5)
  - Application site pain [None]
  - Application site pruritus [None]
  - Accidental overdose [None]
  - Drug administered at inappropriate site [None]
  - Drug administration error [None]
